FAERS Safety Report 10429594 (Version 1)
Quarter: 2014Q3

REPORT INFORMATION
  Report Type: Spontaneous
  Country: US (occurrence: None)
  Receive Date: 20140902
  Receipt Date: 20140902
  Transmission Date: 20150326
  Serious: No
  Sender: FDA-Public Use
  Company Number: None

PATIENT
  Age: 30 Year
  Sex: Female
  Weight: 65.77 kg

DRUGS (1)
  1. MIRVASO [Suspect]
     Active Substance: BRIMONIDINE TARTRATE
     Indication: ROSACEA
     Dosage: PEA SIZE?ONCE DAILY?APPLIED TO A SURFACE, USUALLY THE SKIN
     Route: 061
     Dates: start: 20140827, end: 20140901

REACTIONS (2)
  - Rash erythematous [None]
  - Skin burning sensation [None]

NARRATIVE: CASE EVENT DATE: 20140901
